FAERS Safety Report 21648009 (Version 6)
Quarter: 2023Q1

REPORT INFORMATION
  Report Type: Spontaneous
  Country: CO (occurrence: CO)
  Receive Date: 20221128
  Receipt Date: 20230323
  Transmission Date: 20230418
  Serious: Yes (Hospitalization, Other)
  Sender: FDA-Public Use
  Company Number: CO-Clinigen Group PLC/ Clinigen Healthcare Ltd-CO-CLGN-22-00518

PATIENT
  Age: 10 Year
  Sex: Female
  Weight: 17.1 kg

DRUGS (24)
  1. INTERFERON GAMMA [Suspect]
     Active Substance: INTERFERON GAMMA
     Indication: Immunodeficiency congenital
     Dosage: 100MCG INJECTABLE SOLUTION VIAL X 0,5 ML; ON MONDAY-WEDNESDAY-FRIDAY
     Route: 058
     Dates: start: 202210
  2. TRIMETOPRIM SULPHA [Concomitant]
     Indication: Prophylaxis
     Dosage: 80/400 MG
     Route: 048
  3. TRIMETOPRIM SULPHA [Concomitant]
     Dosage: EVERY 24 H FOR 24H; EVERY OTHER DAY
     Route: 042
  4. PREDNISOLONE [Concomitant]
     Active Substance: PREDNISOLONE
     Indication: Product used for unknown indication
  5. CEFEPIME [Concomitant]
     Active Substance: CEFEPIME HYDROCHLORIDE
     Indication: Antibiotic prophylaxis
     Route: 042
  6. METRONIDAZOLE [Concomitant]
     Active Substance: METRONIDAZOLE
     Indication: Antibiotic prophylaxis
     Route: 048
  7. METRONIDAZOLE [Concomitant]
     Active Substance: METRONIDAZOLE
     Route: 042
  8. MEROPENEM [Concomitant]
     Active Substance: MEROPENEM
     Indication: Antibiotic therapy
     Route: 042
  9. ISONIAZID [Concomitant]
     Active Substance: ISONIAZID
     Indication: Intestinal tuberculosis
  10. RIFAMPIN [Concomitant]
     Active Substance: RIFAMPIN
     Indication: Intestinal tuberculosis
  11. ETHAMBUTOL [Concomitant]
     Active Substance: ETHAMBUTOL HYDROCHLORIDE
     Indication: Intestinal tuberculosis
  12. VORICONAZOLE [Concomitant]
     Active Substance: VORICONAZOLE
     Indication: Prophylaxis
     Route: 048
  13. VORICONAZOLE [Concomitant]
     Active Substance: VORICONAZOLE
     Route: 048
  14. VORICONAZOLE [Concomitant]
     Active Substance: VORICONAZOLE
     Route: 048
     Dates: start: 20221004
  15. HYOSCINE N-BUTYL BROMIDE [Concomitant]
     Indication: Pain
     Route: 042
  16. POTASSIUM CHLORIDE [Concomitant]
     Active Substance: POTASSIUM CHLORIDE
     Indication: Product used for unknown indication
     Route: 042
  17. MESALAMINE [Concomitant]
     Active Substance: MESALAMINE
     Indication: Product used for unknown indication
     Route: 048
  18. FOLIC ACID [Concomitant]
     Active Substance: FOLIC ACID
     Indication: Crohn^s disease
     Route: 048
  19. LEVOFLOXACIN [Concomitant]
     Active Substance: LEVOFLOXACIN
     Indication: Product used for unknown indication
     Route: 048
  20. PYRAZINAMIDE [Concomitant]
     Active Substance: PYRAZINAMIDE
     Indication: Intestinal tuberculosis
  21. BEDAQUILINE [Concomitant]
     Active Substance: BEDAQUILINE
     Indication: Product used for unknown indication
     Route: 048
  22. CLOFAZIMINE [Concomitant]
     Active Substance: CLOFAZIMINE
     Indication: Product used for unknown indication
     Route: 048
  23. LINEZOLID [Concomitant]
     Active Substance: LINEZOLID
     Indication: Product used for unknown indication
     Route: 048
  24. ACETAMINOPHEN [Concomitant]
     Active Substance: ACETAMINOPHEN
     Indication: Product used for unknown indication
     Route: 048

REACTIONS (2)
  - Intestinal obstruction [Recovered/Resolved]
  - Off label use [Unknown]

NARRATIVE: CASE EVENT DATE: 20221104
